FAERS Safety Report 23053290 (Version 2)
Quarter: 2024Q1

REPORT INFORMATION
  Report Type: Spontaneous
  Country: ES (occurrence: ES)
  Receive Date: 20231011
  Receipt Date: 20240329
  Transmission Date: 20240410
  Serious: Yes (Other)
  Sender: FDA-Public Use
  Company Number: ES-ELI_LILLY_AND_COMPANY-ES202305002035

PATIENT
  Age: 41 Year
  Sex: Female

DRUGS (6)
  1. LETROZOLE [Suspect]
     Active Substance: LETROZOLE
     Indication: Breast cancer metastatic
     Dosage: UNK
     Route: 065
  2. ABEMACICLIB [Suspect]
     Active Substance: ABEMACICLIB
     Indication: Breast cancer metastatic
     Dosage: 200 MG, QD (100 MG, BID)
     Route: 048
  3. ABEMACICLIB [Suspect]
     Active Substance: ABEMACICLIB
     Dosage: 50 MG
     Route: 048
  4. ABEMACICLIB [Suspect]
     Active Substance: ABEMACICLIB
     Dosage: 150 MG
     Route: 048
     Dates: start: 20220806
  5. ABEMACICLIB [Suspect]
     Active Substance: ABEMACICLIB
     Dosage: 200 MG, QD (100 MG, BID)
     Route: 048
     Dates: start: 202209
  6. ABEMACICLIB [Suspect]
     Active Substance: ABEMACICLIB
     Dosage: 100 MG, QD (50 MG, UNKNOWN)
     Route: 048
     Dates: start: 202308, end: 20240215

REACTIONS (17)
  - Blindness [Not Recovered/Not Resolved]
  - Tooth abscess [Not Recovered/Not Resolved]
  - Lymphadenopathy [Recovered/Resolved]
  - Gingival bleeding [Not Recovered/Not Resolved]
  - Toothache [Not Recovered/Not Resolved]
  - Aphthous ulcer [Not Recovered/Not Resolved]
  - Infection parasitic [Unknown]
  - Liver disorder [Recovered/Resolved]
  - Decreased immune responsiveness [Recovering/Resolving]
  - Lymphadenitis [Recovering/Resolving]
  - Pyrexia [Recovering/Resolving]
  - Abdominal pain [Unknown]
  - Diarrhoea [Recovering/Resolving]
  - Visual impairment [Recovering/Resolving]
  - Stomatitis [Recovered/Resolved]
  - Tonsillitis [Recovering/Resolving]
  - Dizziness [Recovering/Resolving]

NARRATIVE: CASE EVENT DATE: 20220901
